FAERS Safety Report 7002293-3 (Version None)
Quarter: 2010Q3

REPORT INFORMATION
  Report Type: 
  Country: None (occurrence: None)
  Receive Date: 20100920
  Receipt Date: 20100712
  Transmission Date: 20110219
  Serious: No
  Sender: FDA-Public Use
  Company Number: US-ASTRAZENECA-2010SE32457

PATIENT
  Age: 54 Year
  Sex: Female
  Weight: 69.9 kg

DRUGS (1)
  1. SEROQUEL [Suspect]
     Indication: INSOMNIA
     Route: 048

REACTIONS (7)
  - DRUG DOSE OMISSION [None]
  - HALLUCINATION [None]
  - INSOMNIA [None]
  - MALAISE [None]
  - MIGRAINE [None]
  - NEUROPATHY PERIPHERAL [None]
  - WEIGHT DECREASED [None]
